FAERS Safety Report 9637042 (Version 1)
Quarter: 2013Q4

REPORT INFORMATION
  Report Type: Spontaneous
  Country: US (occurrence: US)
  Receive Date: 20131022
  Receipt Date: 20131022
  Transmission Date: 20140711
  Serious: Yes (Other)
  Sender: FDA-Public Use
  Company Number: US-RANBAXY-2013US-74227

PATIENT
  Age: 31 Year
  Sex: Male

DRUGS (6)
  1. RISPERIDONE [Suspect]
     Indication: PRODUCT USED FOR UNKNOWN INDICATION
     Dosage: 6 MG, DAILY
     Route: 065
  2. CHLORPROMAZINE [Interacting]
     Indication: PRODUCT USED FOR UNKNOWN INDICATION
     Dosage: 200 MG, TID
     Route: 065
  3. CLOMIPRAMINE [Interacting]
     Indication: OBSESSIVE-COMPULSIVE DISORDER
     Dosage: 25 MG, DAILY
     Route: 065
  4. CLOMIPRAMINE [Interacting]
     Indication: OBSESSIVE-COMPULSIVE DISORDER
     Dosage: 200 MG, DAILY
     Route: 065
  5. CLOMIPRAMINE [Interacting]
     Indication: OBSESSIVE-COMPULSIVE DISORDER
     Dosage: 150 MG, DAILY
     Route: 065
  6. CLOMIPRAMINE [Interacting]
     Indication: OBSESSIVE-COMPULSIVE DISORDER
     Dosage: 100 MG DAILY
     Route: 065

REACTIONS (3)
  - Pleurothotonus [Not Recovered/Not Resolved]
  - Drug interaction [Unknown]
  - Sexual dysfunction [Unknown]
